FAERS Safety Report 23605560 (Version 2)
Quarter: 2025Q1

REPORT INFORMATION
  Report Type: Spontaneous
  Country: US (occurrence: US)
  Receive Date: 20240307
  Receipt Date: 20250129
  Transmission Date: 20250409
  Serious: No
  Sender: SANOFI AVENTIS
  Company Number: US-SA-SAC20240301000251

PATIENT
  Age: 62 Year
  Sex: Male

DRUGS (11)
  1. REZUROCK [Suspect]
     Active Substance: BELUMOSUDIL
     Indication: Chronic graft versus host disease
     Dosage: 200 MG, QD
     Route: 048
     Dates: start: 20230213
  2. TAMSULOSIN [Concomitant]
     Active Substance: TAMSULOSIN
  3. JAKAFI [Concomitant]
     Active Substance: RUXOLITINIB
  4. VORICONAZOLE [Concomitant]
     Active Substance: VORICONAZOLE
  5. VITAMIN B12 [Concomitant]
     Active Substance: CYANOCOBALAMIN
  6. VITAMIN D3 [Concomitant]
     Active Substance: CHOLECALCIFEROL
  7. BACTRIM DS [Concomitant]
     Active Substance: SULFAMETHOXAZOLE\TRIMETHOPRIM
  8. DOXYCYCLINE [Concomitant]
     Active Substance: DOXYCYCLINE
  9. TESTOSTERONE [Concomitant]
     Active Substance: TESTOSTERONE
  10. ACYCLOVIR [Concomitant]
     Active Substance: ACYCLOVIR
  11. CRESEMBA [Concomitant]
     Active Substance: ISAVUCONAZONIUM SULFATE

REACTIONS (2)
  - Dry mouth [Unknown]
  - Abdominal discomfort [Unknown]

NARRATIVE: CASE EVENT DATE: 20240101
